FAERS Safety Report 23362100 (Version 1)
Quarter: 2024Q1

REPORT INFORMATION
  Report Type: Spontaneous
  Country: US (occurrence: None)
  Receive Date: 20240102
  Receipt Date: 20240102
  Transmission Date: 20240409
  Serious: No
  Sender: FDA-Public Use
  Company Number: None

PATIENT
  Age: 44 Year
  Sex: Female

DRUGS (1)
  1. HUMIRA [Suspect]
     Active Substance: ADALIMUMAB
     Indication: Rheumatoid arthritis
     Dosage: OTHER FREQUENCY : 40 MG Q 14 DAYS;?
     Route: 058
     Dates: start: 20231213, end: 20231213

REACTIONS (3)
  - Rash [None]
  - Joint stiffness [None]
  - Wheezing [None]

NARRATIVE: CASE EVENT DATE: 20231213
